FAERS Safety Report 5572992-9 (Version None)
Quarter: 2007Q4

REPORT INFORMATION
  Report Type: 
  Country: None (occurrence: None)
  Receive Date: 20071220
  Receipt Date: 20071130
  Transmission Date: 20080405
  Serious: Yes (Hospitalization)
  Sender: FDA-Public Use
  Company Number: ENT 2007-0225

PATIENT
  Age: 72 Year
  Sex: Male

DRUGS (6)
  1. COMTAN [Suspect]
     Dosage: 600 MG ORAL
     Route: 048
  2. MODOPAR [Suspect]
     Dosage: 750 MG ORAL, 850 MG ORAL
     Route: 048
  3. ATHYMIL [Concomitant]
  4. LANTUS [Concomitant]
  5. KARDEGIC [Concomitant]
  6. LIPANTHYL [Concomitant]

REACTIONS (5)
  - EXTRAPYRAMIDAL DISORDER [None]
  - GAIT DISTURBANCE [None]
  - MUSCULAR WEAKNESS [None]
  - MYALGIA [None]
  - ORTHOSTATIC HYPOTENSION [None]
